FAERS Safety Report 11631350 (Version 4)
Quarter: 2018Q4

REPORT INFORMATION
  Report Type: Spontaneous
  Country: GB (occurrence: GB)
  Receive Date: 20151014
  Receipt Date: 20181203
  Transmission Date: 20190204
  Serious: Yes (Hospitalization)
  Sender: FDA-Public Use
  Company Number: GB-JNJFOC-20151010219

PATIENT
  Age: 42 Year
  Sex: Male

DRUGS (2)
  1. PARACETAMOL [Suspect]
     Active Substance: ACETAMINOPHEN
     Route: 065
  2. PARACETAMOL [Suspect]
     Active Substance: ACETAMINOPHEN
     Indication: TOOTHACHE
     Route: 065

REACTIONS (4)
  - Encephalopathy [Recovered/Resolved]
  - Accidental overdose [Recovered/Resolved]
  - Acute hepatic failure [Recovered/Resolved]
  - Coagulopathy [Recovered/Resolved]
